FAERS Safety Report 17604967 (Version 1)
Quarter: 2020Q1

REPORT INFORMATION
  Report Type: Spontaneous
  Country: US (occurrence: US)
  Receive Date: 20200330
  Receipt Date: 20200330
  Transmission Date: 20200409
  Serious: No
  Sender: FDA-Public Use
  Company Number: None

PATIENT
  Sex: Female

DRUGS (1)
  1. EVEROLIMUS. [Suspect]
     Active Substance: EVEROLIMUS
     Indication: SEIZURE
     Route: 048
     Dates: start: 202002, end: 20200325

REACTIONS (3)
  - Seizure [None]
  - Condition aggravated [None]
  - Product substitution issue [None]
